FAERS Safety Report 12185463 (Version 4)
Quarter: 2016Q3

REPORT INFORMATION
  Report Type: Report from Study
  Country: FI (occurrence: FI)
  Receive Date: 20160316
  Receipt Date: 20160704
  Transmission Date: 20161109
  Serious: Yes (Life-Threatening, Hospitalization, Other)
  Sender: FDA-Public Use
  Company Number: FI-ABBVIE-16P-055-1581304-00

PATIENT
  Age: 71 Year
  Sex: Male
  Weight: 80 kg

DRUGS (38)
  1. DUODOPA [Suspect]
     Active Substance: CARBIDOPA\LEVODOPA
     Dosage: MD 10ML, CD 6ML/H; ED 2ML
     Route: 050
     Dates: start: 20140217
  2. DUODOPA [Suspect]
     Active Substance: CARBIDOPA\LEVODOPA
     Dosage: MD 11ML; CD 6ML/H IN THE MORNING; CD 6.2ML/H ABOUT 1 PM FORWARD; ED 2ML
     Route: 050
     Dates: start: 2014, end: 2014
  3. SIFROL [Concomitant]
     Active Substance: PRAMIPEXOLE
     Dates: start: 20131213
  4. IMOVANE [Concomitant]
     Active Substance: ZOPICLONE
     Indication: SLEEP DISORDER
     Dates: start: 2014, end: 2014
  5. IMOVANE [Concomitant]
     Active Substance: ZOPICLONE
     Dosage: 3.75-7.5 MG ONCE A DAY
  6. TARGINIQ ER [Concomitant]
     Active Substance: NALOXONE HYDROCHLORIDE\OXYCODONE HYDROCHLORIDE
     Indication: PRODUCT USED FOR UNKNOWN INDICATION
     Dosage: 5/2.5 MGX2
  7. PANADOL FORTE [Concomitant]
     Active Substance: ACETAMINOPHEN\CAFFEINE
     Indication: PAIN
     Dosage: 1 GRAM 1-3 TIMES A DAY
  8. SINEMET [Concomitant]
     Active Substance: CARBIDOPA\LEVODOPA
     Dosage: 25/100 ONCE IN THE NIGHT
     Dates: start: 2014
  9. DUODOPA [Suspect]
     Active Substance: CARBIDOPA\LEVODOPA
     Indication: PARKINSON^S DISEASE
     Dosage: MD 6ML; CD 4.3ML, EXTRA BOLUS 1ML AS NEEDED
     Route: 050
     Dates: start: 20140202, end: 20140217
  10. NORFLEX [Concomitant]
     Active Substance: ORPHENADRINE CITRATE
     Indication: MUSCLE SPASMS
     Dates: start: 20140217
  11. LITALGIN [Concomitant]
     Active Substance: PITOFENONE
     Indication: PRODUCT USED FOR UNKNOWN INDICATION
  12. ELOCON [Concomitant]
     Active Substance: MOMETASONE FUROATE
     Indication: PRODUCT USED FOR UNKNOWN INDICATION
  13. KLEXANE [Concomitant]
     Active Substance: ENOXAPARIN
     Indication: PRODUCT USED FOR UNKNOWN INDICATION
     Dates: start: 20160211
  14. SOMAC [Concomitant]
     Active Substance: PANTOPRAZOLE SODIUM
     Indication: PRODUCT USED FOR UNKNOWN INDICATION
  15. LEVOCAR [Concomitant]
     Indication: PRODUCT USED FOR UNKNOWN INDICATION
     Dosage: 200/50 MG ONCE A DAY
  16. TOVIAZ [Concomitant]
     Active Substance: FESOTERODINE FUMARATE
     Indication: PRODUCT USED FOR UNKNOWN INDICATION
  17. DUODOPA [Suspect]
     Active Substance: CARBIDOPA\LEVODOPA
     Dosage: MD 11ML; CD 6.0 ML/H UNTIL 1PM; CD 6.3ML/H 1PM FORWARD, ED 2ML
     Route: 050
     Dates: start: 2014, end: 20160213
  18. STALEVO [Concomitant]
     Active Substance: CARBIDOPA\ENTACAPONE\LEVODOPA
     Dosage: 150 MG FIVE TIMES PER DAY + 200MG AT 9PM
     Dates: start: 201604
  19. NORFLEX [Concomitant]
     Active Substance: ORPHENADRINE CITRATE
     Dosage: ONCE DAILY
     Dates: start: 20160217
  20. KLEXANE [Concomitant]
     Active Substance: ENOXAPARIN
     Dates: start: 201602
  21. FURESIS [Concomitant]
     Active Substance: FUROSEMIDE
     Indication: PRODUCT USED FOR UNKNOWN INDICATION
     Dates: start: 2016
  22. KARDOPAL [Concomitant]
     Dates: start: 201603, end: 20160321
  23. PANADOL FORTE [Concomitant]
     Active Substance: ACETAMINOPHEN\CAFFEINE
     Dates: start: 20160217, end: 201603
  24. MELATONIN [Concomitant]
     Active Substance: MELATONIN
  25. LEVOLAC [Concomitant]
     Active Substance: LACTULOSE
     Indication: PRODUCT USED FOR UNKNOWN INDICATION
  26. IPRAMOL [Concomitant]
     Active Substance: ALBUTEROL SULFATE\IPRATROPIUM BROMIDE
     Indication: PRODUCT USED FOR UNKNOWN INDICATION
     Dosage: 1-4 TIMES A DAY WITH A NEBULIZER
  27. STALEVO [Concomitant]
     Active Substance: CARBIDOPA\ENTACAPONE\LEVODOPA
     Indication: PRODUCT USED FOR UNKNOWN INDICATION
     Dosage: 150 MG SIX TIMES PER DAY + 200MG AT 9PM
     Dates: start: 20160321, end: 201604
  28. KARDOPAL [Concomitant]
     Indication: PRODUCT USED FOR UNKNOWN INDICATION
     Dosage: 200/50 MG ONCE PER DAY FOR NIGHT
     Dates: start: 20140217, end: 201603
  29. MEROPENEM. [Concomitant]
     Active Substance: MEROPENEM
     Indication: PRODUCT USED FOR UNKNOWN INDICATION
     Dates: start: 20160212
  30. SPIRONOLACTONE. [Concomitant]
     Active Substance: SPIRONOLACTONE
     Indication: PRODUCT USED FOR UNKNOWN INDICATION
  31. PEGORION [Concomitant]
     Indication: PRODUCT USED FOR UNKNOWN INDICATION
  32. SIFROL [Concomitant]
     Active Substance: PRAMIPEXOLE
     Indication: PRODUCT USED FOR UNKNOWN INDICATION
  33. MADOPARK QUICK [Concomitant]
     Active Substance: BENSERAZIDE HYDROCHLORIDE\LEVODOPA
     Indication: PRODUCT USED FOR UNKNOWN INDICATION
     Dosage: 100/25 MG X 0.5-1
  34. SINEMET [Concomitant]
     Active Substance: CARBIDOPA\LEVODOPA
     Indication: PRODUCT USED FOR UNKNOWN INDICATION
     Dosage: 25/100 1 TABLET AS NEEDED FOR THE NIGHT
     Dates: start: 20141107
  35. MELATONIN [Concomitant]
     Active Substance: MELATONIN
     Indication: PRODUCT USED FOR UNKNOWN INDICATION
  36. KLEXANE [Concomitant]
     Active Substance: ENOXAPARIN
     Dosage: 40 MG ONCE 6 H POSTOPERATIVE
     Route: 058
     Dates: start: 20160212, end: 20160212
  37. FURESIS [Concomitant]
     Active Substance: FUROSEMIDE
     Indication: PRODUCT USED FOR UNKNOWN INDICATION
     Dosage: 5-10 MG AS NEEDED
     Route: 042
  38. TROSPIUM [Concomitant]
     Active Substance: TROSPIUM
     Indication: PRODUCT USED FOR UNKNOWN INDICATION

REACTIONS (63)
  - Aspiration [Unknown]
  - Polyneuropathy [Unknown]
  - Nausea [Unknown]
  - Rhonchi [Recovered/Resolved]
  - Abdominal distension [Unknown]
  - Condition aggravated [Not Recovered/Not Resolved]
  - Vomiting [Recovered/Resolved]
  - Hypoaesthesia [Unknown]
  - Fatigue [Unknown]
  - Hypotension [Unknown]
  - Intestinal dilatation [Recovered/Resolved]
  - Infection [Unknown]
  - Weight decreased [Unknown]
  - Clumsiness [Unknown]
  - Posture abnormal [Unknown]
  - Peripheral coldness [Unknown]
  - Paranoia [Unknown]
  - Flatulence [Unknown]
  - Hallucination [Recovered/Resolved]
  - Abdominal rigidity [Recovering/Resolving]
  - C-reactive protein increased [Unknown]
  - Muscle atrophy [Unknown]
  - Cholecystitis [Unknown]
  - Confusional state [Unknown]
  - Psychomotor hyperactivity [Unknown]
  - Pulmonary embolism [Recovering/Resolving]
  - Anaemia [Unknown]
  - Fine motor skill dysfunction [Unknown]
  - Dry skin [Unknown]
  - Agitation [Unknown]
  - Fatigue [Unknown]
  - Intestinal perforation [Recovering/Resolving]
  - Abdominal tenderness [Recovering/Resolving]
  - Stoma site erythema [Recovered/Resolved]
  - Gait disturbance [Unknown]
  - Abdominal pain upper [Unknown]
  - Hyperkinesia [Recovering/Resolving]
  - Septic shock [Recovered/Resolved]
  - Gastrointestinal ulcer [Not Recovered/Not Resolved]
  - Oxygen saturation abnormal [Unknown]
  - Abdominal pain [Unknown]
  - Somnolence [Unknown]
  - Speech disorder [Unknown]
  - Dysstasia [Unknown]
  - Delusion [Recovering/Resolving]
  - Decubitus ulcer [Unknown]
  - Medical device site granuloma [Unknown]
  - Neuropathy peripheral [Unknown]
  - Vomiting [Unknown]
  - Thrombocytosis [Unknown]
  - Hepatic enzyme increased [Unknown]
  - Hallucination, visual [Unknown]
  - Hypertonia [Unknown]
  - Hernia [Unknown]
  - Unintentional medical device removal [Unknown]
  - Dyspnoea [Unknown]
  - Myopathy [Unknown]
  - Post procedural pneumonia [Recovered/Resolved]
  - Intra-abdominal haematoma [Unknown]
  - Dyskinesia [Unknown]
  - Dysphagia [Unknown]
  - Anxiety [Recovering/Resolving]
  - Device issue [Unknown]

NARRATIVE: CASE EVENT DATE: 2014
